FAERS Safety Report 9189841 (Version 1)
Quarter: 2013Q1

REPORT INFORMATION
  Report Type: Spontaneous
  Country: US (occurrence: US)
  Receive Date: 20130326
  Receipt Date: 20130326
  Transmission Date: 20140127
  Serious: Yes (Disabling, Other)
  Sender: FDA-Public Use
  Company Number: US-PFIZER INC-2013094264

PATIENT
  Sex: Male
  Weight: 100 kg

DRUGS (2)
  1. VIAGRA [Suspect]
     Indication: ERECTILE DYSFUNCTION
     Dosage: 100 MG, AS NEEDED
     Route: 048
  2. LAMOTRIGINE [Concomitant]
     Indication: DEPRESSION
     Dosage: 20 MG, 1X/DAY

REACTIONS (2)
  - Spinal fracture [Not Recovered/Not Resolved]
  - Tendon disorder [Not Recovered/Not Resolved]
